FAERS Safety Report 9625458 (Version 2)
Quarter: 2013Q4

REPORT INFORMATION
  Report Type: Report from Study
  Country: CA (occurrence: CA)
  Receive Date: 20131016
  Receipt Date: 20131111
  Transmission Date: 20140711
  Serious: Yes (Other)
  Sender: FDA-Public Use
  Company Number: CA-JNJFOC-20131006019

PATIENT
  Age: 51 Year
  Sex: Male

DRUGS (9)
  1. SIMPONI [Suspect]
     Indication: ANKYLOSING SPONDYLITIS
     Route: 058
     Dates: start: 20130907
  2. SIMPONI [Suspect]
     Indication: ANKYLOSING SPONDYLITIS
     Route: 058
     Dates: start: 20100915
  3. PREDNISONE [Suspect]
     Indication: VIITH NERVE PARALYSIS
     Route: 065
  4. PREDNISONE [Suspect]
     Indication: VIITH NERVE PARALYSIS
     Dosage: 60 MG
     Route: 065
  5. PREDNISONE [Suspect]
     Indication: VIITH NERVE PARALYSIS
     Route: 065
  6. PREDNISONE [Suspect]
     Indication: VIITH NERVE PARALYSIS
     Route: 065
  7. VITAMIN B12 [Concomitant]
     Route: 065
  8. CALCIUM [Concomitant]
     Route: 065
  9. ZINC [Concomitant]
     Route: 065

REACTIONS (2)
  - VIIth nerve paralysis [Recovering/Resolving]
  - Blood glucose increased [Unknown]
